FAERS Safety Report 18629081 (Version 1)
Quarter: 2020Q4

REPORT INFORMATION
  Report Type: Report from Study
  Country: CA (occurrence: CA)
  Receive Date: 20201217
  Receipt Date: 20201217
  Transmission Date: 20210114
  Serious: Yes (Other)
  Sender: FDA-Public Use
  Company Number: CA-JNJFOC-20201223560

PATIENT
  Age: 28 Year
  Sex: Female
  Weight: 117.8 kg

DRUGS (1)
  1. SIMPONI [Suspect]
     Active Substance: GOLIMUMAB
     Indication: PRODUCT USED FOR UNKNOWN INDICATION
     Route: 058
     Dates: start: 20201126

REACTIONS (2)
  - Mucous stools [Not Recovered/Not Resolved]
  - Diarrhoea haemorrhagic [Not Recovered/Not Resolved]
